FAERS Safety Report 4401524-3 (Version None)
Quarter: 2004Q3

REPORT INFORMATION
  Report Type: 
  Country: None (occurrence: None)
  Receive Date: 20040715
  Receipt Date: 20040709
  Transmission Date: 20050211
  Serious: Yes (Hospitalization)
  Sender: FDA-Public Use
  Company Number: 2004UW12503

PATIENT
  Sex: Female

DRUGS (1)
  1. CRESTOR [Suspect]
     Dosage: 10 MG DAILY PO
     Route: 048
     Dates: start: 20030101, end: 20040530

REACTIONS (4)
  - DEHYDRATION [None]
  - DIARRHOEA [None]
  - PNEUMONIA [None]
  - RHABDOMYOLYSIS [None]
